FAERS Safety Report 15605267 (Version 1)
Quarter: 2018Q4

REPORT INFORMATION
  Report Type: Spontaneous
  Country: FR (occurrence: FR)
  Receive Date: 20181112
  Receipt Date: 20181112
  Transmission Date: 20190205
  Serious: Yes (Hospitalization)
  Sender: FDA-Public Use
  Company Number: FR-SUN PHARMACEUTICAL INDUSTRIES LTD-2018RR-190544

PATIENT
  Age: 65 Year
  Sex: Male

DRUGS (1)
  1. TRAMADOL. [Suspect]
     Active Substance: TRAMADOL
     Indication: MYOCLONUS
     Dosage: ()
     Route: 048
     Dates: start: 2015

REACTIONS (1)
  - Coronary artery stenosis [Unknown]

NARRATIVE: CASE EVENT DATE: 201710
